FAERS Safety Report 4425161-X (Version None)
Quarter: 2004Q3

REPORT INFORMATION
  Report Type: 
  Country: None (occurrence: None)
  Receive Date: 20040809
  Receipt Date: 20040723
  Transmission Date: 20050211
  Serious: Yes (Other)
  Sender: FDA-Public Use
  Company Number: US-2004-029228

PATIENT
  Age: 44 Year
  Sex: Female

DRUGS (2)
  1. YASMIN [Suspect]
     Indication: ORAL CONTRACEPTION
     Dosage: 1 TAB(S), 1X/DAY, ORAL
     Route: 048
     Dates: start: 20010101, end: 20030101
  2. AMERGE [Suspect]
     Indication: MIGRAINE
     Dates: start: 20030101, end: 20030101

REACTIONS (1)
  - COLITIS ISCHAEMIC [None]
